FAERS Safety Report 7161724-9 (Version None)
Quarter: 2010Q4

REPORT INFORMATION
  Report Type: 
  Country: None (occurrence: None)
  Receive Date: 20101201
  Receipt Date: 20101112
  Transmission Date: 20110411
  Serious: Yes (Other)
  Sender: FDA-Public Use
  Company Number: AUR-APL-2010-02857

PATIENT
  Age: 21 Year
  Sex: Female

DRUGS (1)
  1. AMOXICILLIN [Suspect]
     Dosage: 2G - DAILY - ORAL
     Route: 048
     Dates: start: 20101030, end: 20101101

REACTIONS (3)
  - DRUG HYPERSENSITIVITY [None]
  - DYSPHAGIA [None]
  - LARYNGEAL OEDEMA [None]
